FAERS Safety Report 15555382 (Version 2)
Quarter: 2019Q1

REPORT INFORMATION
  Report Type: Report from Study
  Country: AR (occurrence: AR)
  Receive Date: 20181026
  Receipt Date: 20190130
  Transmission Date: 20190417
  Serious: Yes (Other)
  Sender: FDA-Public Use
  Company Number: PHHY2018AR136106

PATIENT
  Age: 67 Year
  Sex: Female

DRUGS (1)
  1. ENTRESTO [Suspect]
     Active Substance: SACUBITRIL\VALSARTAN
     Indication: CARDIAC FAILURE
     Dosage: 100 MG (SACUBITRIL 49 MG AND VALSARTAN 51 MG), Q12H
     Route: 065
     Dates: start: 201809

REACTIONS (4)
  - Diabetes mellitus [Unknown]
  - Gastroenteritis [Unknown]
  - Urticaria [Unknown]
  - Wrong technique in product usage process [Unknown]

NARRATIVE: CASE EVENT DATE: 201809
